FAERS Safety Report 8334785-9 (Version None)
Quarter: 2012Q2

REPORT INFORMATION
  Report Type: 
  Country: None (occurrence: None)
  Receive Date: 20120503
  Receipt Date: 20120427
  Transmission Date: 20120825
  Serious: Yes (Other)
  Sender: FDA-Public Use
  Company Number: US-AMGEN-USASP2011051983

PATIENT
  Age: 51 Year
  Sex: Female
  Weight: 84.58 kg

DRUGS (7)
  1. MULTIVITAMIN AND MINERAL [Concomitant]
     Dosage: UNK
     Dates: start: 20100610
  2. CALCIUM 600 + D [Concomitant]
     Dosage: UNK
     Route: 048
     Dates: start: 20100610
  3. PREDNISONE TAB [Concomitant]
     Dosage: 10 MG, UNK
     Route: 048
  4. VITAMIN B COMPLEX CAP [Concomitant]
     Dosage: UNK
     Route: 048
     Dates: start: 20100610
  5. NPLATE [Suspect]
     Indication: IDIOPATHIC THROMBOCYTOPENIC PURPURA
     Dosage: 501 MUG, UNK
     Route: 058
     Dates: start: 20100603, end: 20110610
  6. SYNTHROID [Concomitant]
     Dosage: 100 MUG, UNK
     Route: 048
  7. OMEGA 3                            /01334101/ [Concomitant]
     Dosage: UNK UNK, QD
     Route: 048
     Dates: start: 20101118, end: 20110127

REACTIONS (4)
  - THERAPEUTIC RESPONSE DECREASED [None]
  - THROMBOCYTOPENIA [None]
  - MYELOFIBROSIS [None]
  - CONDITION AGGRAVATED [None]
